FAERS Safety Report 6023834-9 (Version None)
Quarter: 2008Q4

REPORT INFORMATION
  Report Type: 
  Country: None (occurrence: None)
  Receive Date: 20081230
  Receipt Date: 20081217
  Transmission Date: 20090506
  Serious: Yes (Death, Hospitalization)
  Sender: FDA-Public Use
  Company Number: US-PFIZER INC-2008046326

PATIENT
  Sex: Male
  Weight: 36.62 kg

DRUGS (4)
  1. SUNITINIB MALATE [Suspect]
     Route: 048
     Dates: start: 20080428, end: 20080523
  2. DECADRON [Suspect]
     Dosage: 8 MG, 4X/DAY
     Dates: start: 20080401, end: 20080523
  3. OXYCODONE [Suspect]
  4. DILAUDID [Suspect]

REACTIONS (5)
  - MENTAL STATUS CHANGES [None]
  - NECK PAIN [None]
  - NEUTROPENIA [None]
  - PNEUMONIA [None]
  - STAPHYLOCOCCAL SEPSIS [None]
